FAERS Safety Report 5766976-5 (Version None)
Quarter: 2008Q2

REPORT INFORMATION
  Report Type: 
  Country: None (occurrence: None)
  Receive Date: 20080612
  Receipt Date: 20080604
  Transmission Date: 20081010
  Serious: Yes (Other)
  Sender: FDA-Public Use
  Company Number: US-ASTRAZENECA-2008UW11239

PATIENT
  Age: 75 Year
  Sex: Female

DRUGS (2)
  1. CRESTOR [Suspect]
     Route: 048
  2. BONIVA [Concomitant]

REACTIONS (5)
  - BACK PAIN [None]
  - BLOOD URINE PRESENT [None]
  - CHILLS [None]
  - HEART RATE INCREASED [None]
  - URINARY TRACT INFECTION [None]
